FAERS Safety Report 14571318 (Version 3)
Quarter: 2019Q1

REPORT INFORMATION
  Report Type: Report from Study
  Country: IL (occurrence: IL)
  Receive Date: 20180226
  Receipt Date: 20190101
  Transmission Date: 20190417
  Serious: Yes (Other)
  Sender: FDA-Public Use
  Company Number: IL-ROCHE-1976263

PATIENT
  Age: 40 Year
  Sex: Female

DRUGS (4)
  1. OCREVUS [Suspect]
     Active Substance: OCRELIZUMAB
     Dosage: SECOND DOSE
     Route: 042
     Dates: start: 20170803
  2. OCREVUS [Suspect]
     Active Substance: OCRELIZUMAB
     Indication: RELAPSING-REMITTING MULTIPLE SCLEROSIS
     Route: 042
     Dates: start: 20170705
  3. OCREVUS [Suspect]
     Active Substance: OCRELIZUMAB
     Dosage: THIRD COURSE
     Route: 042
     Dates: start: 20180621
  4. OCREVUS [Suspect]
     Active Substance: OCRELIZUMAB
     Dosage: THIRD TREATMENT COURSE
     Route: 042
     Dates: start: 201801

REACTIONS (7)
  - Pain [Unknown]
  - Multiple sclerosis [Unknown]
  - Depressed mood [Unknown]
  - General physical health deterioration [Unknown]
  - Fatigue [Unknown]
  - Somnolence [Unknown]
  - Anxiety [Unknown]

NARRATIVE: CASE EVENT DATE: 201806
